FAERS Safety Report 17802400 (Version 1)
Quarter: 2020Q2

REPORT INFORMATION
  Report Type: Spontaneous
  Country: US (occurrence: US)
  Receive Date: 20200518
  Receipt Date: 20200518
  Transmission Date: 20200714
  Serious: Yes (Life-Threatening)
  Sender: FDA-Public Use
  Company Number: None

PATIENT
  Age: 28 Year
  Sex: Female
  Weight: 57.61 kg

DRUGS (1)
  1. LAMOTRIGINE 200MG TABLET [Suspect]
     Active Substance: LAMOTRIGINE
     Indication: SEIZURE
     Dosage: APPROXIMATLEY 2017
     Dates: start: 2017

REACTIONS (2)
  - Condition aggravated [None]
  - Seizure [None]
